FAERS Safety Report 5348862-8 (Version None)
Quarter: 2007Q2

REPORT INFORMATION
  Report Type: 
  Country: None (occurrence: None)
  Receive Date: 20070607
  Receipt Date: 20070528
  Transmission Date: 20071010
  Serious: Yes (Hospitalization)
  Sender: FDA-Public Use
  Company Number: PHEH2007US06875

PATIENT
  Age: 49 Year
  Sex: Female

DRUGS (14)
  1. ZELNORM [Suspect]
     Indication: IRRITABLE BOWEL SYNDROME
     Dosage: 6 MG, BID
     Route: 048
     Dates: start: 20040101, end: 20070503
  2. VICODIN [Concomitant]
     Route: 048
  3. BUSPAR [Concomitant]
     Route: 048
  4. EFFEXOR /USA/ [Concomitant]
     Route: 048
  5. PROTONIX [Concomitant]
     Route: 048
  6. KLONOPIN [Concomitant]
     Route: 048
  7. CENESTIN [Concomitant]
  8. ATIVAN [Concomitant]
     Route: 048
  9. MAGNESIUM SULFATE [Concomitant]
     Route: 048
  10. ALLEGRA [Concomitant]
     Route: 048
  11. TRAZODONE HCL [Concomitant]
     Route: 048
  12. REQUIP [Concomitant]
     Route: 048
  13. AMBIEN [Concomitant]
     Route: 048
  14. COMBIVENT /JOR/ [Concomitant]

REACTIONS (9)
  - ANXIETY [None]
  - ARRHYTHMIA [None]
  - CONDUCTION DISORDER [None]
  - DEPRESSED MOOD [None]
  - INSOMNIA [None]
  - IRRITABLE BOWEL SYNDROME [None]
  - OVERDOSE [None]
  - PANIC ATTACK [None]
  - RESTLESS LEGS SYNDROME [None]
